FAERS Safety Report 4799796-9 (Version None)
Quarter: 2005Q4

REPORT INFORMATION
  Report Type: 
  Country: None (occurrence: None)
  Receive Date: 20051013
  Receipt Date: 20051013
  Transmission Date: 20060501
  Serious: Yes (Hospitalization)
  Sender: FDA-Public Use
  Company Number: None

PATIENT
  Sex: Male
  Weight: 133 kg

DRUGS (1)
  1. KEPPRA [Suspect]
     Indication: CONVULSION
     Dosage: 1500 MG  BID PO
     Route: 048

REACTIONS (4)
  - AGGRESSION [None]
  - FEAR [None]
  - MOOD SWINGS [None]
  - VERBAL ABUSE [None]
